FAERS Safety Report 9196415 (Version 1)
Quarter: 2013Q1

REPORT INFORMATION
  Report Type: Spontaneous
  Country: US (occurrence: US)
  Receive Date: 20130328
  Receipt Date: 20130328
  Transmission Date: 20140127
  Serious: No
  Sender: FDA-Public Use
  Company Number: US-PFIZER INC-2013093770

PATIENT
  Age: 57 Year
  Sex: Male
  Weight: 95.24 kg

DRUGS (1)
  1. VIAGRA [Suspect]
     Indication: ERECTILE DYSFUNCTION
     Dosage: ONE TIME
     Route: 048
     Dates: start: 2008, end: 2008

REACTIONS (4)
  - Vision blurred [Recovered/Resolved]
  - Chromatopsia [Recovered/Resolved]
  - Tinnitus [Recovered/Resolved]
  - Discomfort [Recovered/Resolved]
